FAERS Safety Report 5339754-9 (Version None)
Quarter: 2007Q2

REPORT INFORMATION
  Report Type: 
  Country: None (occurrence: None)
  Receive Date: 20070531
  Receipt Date: 20070525
  Transmission Date: 20071010
  Serious: Yes (Life-Threatening, Hospitalization)
  Sender: FDA-Public Use
  Company Number: PHEH2007US07957

PATIENT
  Age: 21 Year
  Sex: Female
  Weight: 114 kg

DRUGS (3)
  1. RITALIN [Suspect]
  2. METADATE CD [Suspect]
  3. LEXAPRO [Suspect]

REACTIONS (2)
  - ANOXIC ENCEPHALOPATHY [None]
  - CARDIAC ARREST [None]
